FAERS Safety Report 16680856 (Version 1)
Quarter: 2019Q3

REPORT INFORMATION
  Report Type: Spontaneous
  Country: CA (occurrence: CA)
  Receive Date: 20190808
  Receipt Date: 20190808
  Transmission Date: 20191004
  Serious: Yes (Death, Other)
  Sender: FDA-Public Use
  Company Number: CA-OCTA-NGAM12419CA

PATIENT
  Age: 13 Year
  Sex: Male
  Weight: 32 kg

DRUGS (4)
  1. CEFTRIAXONE. [Concomitant]
     Active Substance: CEFTRIAXONE
     Indication: PRODUCT USED FOR UNKNOWN INDICATION
  2. PANZYGA [Suspect]
     Active Substance: HUMAN IMMUNOGLOBULIN G
     Indication: MYOCARDITIS
     Route: 042
     Dates: start: 20190320, end: 20190320
  3. OXYGEN. [Concomitant]
     Active Substance: OXYGEN
     Indication: PRODUCT USED FOR UNKNOWN INDICATION
  4. ANCEF [Concomitant]
     Active Substance: CEFAZOLIN SODIUM
     Indication: PRODUCT USED FOR UNKNOWN INDICATION

REACTIONS (10)
  - Tachypnoea [Unknown]
  - Hypertension [Unknown]
  - Pyrexia [Unknown]
  - Troponin increased [Unknown]
  - Chills [Unknown]
  - Dyspnoea [Unknown]
  - Tachycardia [Unknown]
  - Metabolic disorder [Unknown]
  - Febrile nonhaemolytic transfusion reaction [Recovered/Resolved]
  - Livedo reticularis [Unknown]

NARRATIVE: CASE EVENT DATE: 20190320
